FAERS Safety Report 9224104 (Version 1)
Quarter: 2013Q2

REPORT INFORMATION
  Report Type: Spontaneous
  Country: US (occurrence: None)
  Receive Date: 20130409
  Receipt Date: 20130409
  Transmission Date: 20140414
  Serious: Yes (Other)
  Sender: FDA-Public Use
  Company Number: None

PATIENT
  Age: 45 Year
  Sex: Female
  Weight: 65.77 kg

DRUGS (2)
  1. BUPROPRION XL [Suspect]
     Indication: DEPRESSION
     Dosage: 300 MG  TABLET  ONCE A DAY PO
     Route: 048
     Dates: start: 20130201, end: 20130408
  2. BUPROPRION XL [Suspect]
     Indication: ANXIETY
     Dosage: 300 MG  TABLET  ONCE A DAY PO
     Route: 048
     Dates: start: 20130201, end: 20130408

REACTIONS (2)
  - Drug ineffective [None]
  - Product substitution issue [None]
